FAERS Safety Report 5672138-2 (Version None)
Quarter: 2008Q1

REPORT INFORMATION
  Report Type: 
  Country: None (occurrence: None)
  Receive Date: 20080319
  Receipt Date: 20080306
  Transmission Date: 20080703
  Serious: Yes (Hospitalization)
  Sender: FDA-Public Use
  Company Number: US-ELI_LILLY_AND_COMPANY-US200803001632

PATIENT
  Sex: Female
  Weight: 87.075 kg

DRUGS (20)
  1. GEMCITABINE HCL [Suspect]
     Indication: BREAST CANCER METASTATIC
     Dosage: 1000 MG/M2, OTHER
     Route: 042
     Dates: start: 20071008
  2. PACLITAXEL [Suspect]
     Indication: BREAST CANCER METASTATIC
     Dosage: 90 MG/M2, OTHER
     Route: 042
     Dates: start: 20071008, end: 20071203
  3. BEVACIZUMAB [Suspect]
     Indication: BREAST CANCER METASTATIC
     Dosage: 10 MG/KG, OTHER
     Route: 042
     Dates: start: 20071008
  4. VALTREX [Concomitant]
     Indication: HERPES SIMPLEX
     Dosage: UNK, UNK
     Route: 048
     Dates: start: 20071004
  5. LOTREL [Concomitant]
     Indication: HYPERTENSION
     Dosage: UNK, UNK
     Route: 048
     Dates: start: 20071004, end: 20080301
  6. LOPRESSOR [Concomitant]
     Indication: HYPERTENSION
     Dosage: 25 MG, DAILY (1/D)
     Route: 048
     Dates: start: 20071024
  7. COUMADIN [Concomitant]
     Indication: PROPHYLAXIS
     Dosage: 1 MG, UNK
     Route: 048
     Dates: start: 20071005
  8. DILAUDID [Concomitant]
     Indication: PAIN
     Dosage: 2 MG, UNK
     Route: 048
     Dates: start: 20071022
  9. DIFLUCAN [Concomitant]
     Indication: FUNGAL INFECTION
     Dates: start: 20071228, end: 20071228
  10. DIFLUCAN [Concomitant]
     Dosage: UNK, UNK
     Dates: start: 20080101, end: 20080101
  11. MONISTAT [Concomitant]
     Indication: FUNGAL INFECTION
     Dosage: UNK, UNK
     Dates: start: 20071229, end: 20080302
  12. ATIVAN [Concomitant]
     Indication: ANXIETY
     Dates: start: 20071105
  13. XANAX [Concomitant]
     Indication: ANXIETY
     Dosage: 0.5 MG, UNK
     Route: 048
     Dates: start: 20070921
  14. DARVOCET [Concomitant]
     Indication: PAIN
     Dates: start: 20070912
  15. COMPAZINE [Concomitant]
     Indication: NAUSEA
     Dosage: 10 MG, UNK
     Route: 048
     Dates: start: 20071022
  16. ZOMETA [Concomitant]
     Indication: PROPHYLAXIS
     Dates: start: 20071030
  17. ZOFRAN [Concomitant]
     Indication: PROPHYLAXIS OF NAUSEA AND VOMITING
     Dates: start: 20071015
  18. TAGAMET [Concomitant]
     Indication: PREMEDICATION
     Dates: start: 20071008
  19. DECADRON [Concomitant]
     Indication: PREMEDICATION
     Dates: start: 20071008
  20. BENADRYL [Concomitant]
     Indication: PREMEDICATION
     Dates: start: 20071008

REACTIONS (1)
  - HERPES SIMPLEX [None]
